FAERS Safety Report 21757613 (Version 1)
Quarter: 2022Q4

REPORT INFORMATION
  Report Type: Spontaneous
  Country: US (occurrence: US)
  Receive Date: 20221221
  Receipt Date: 20221221
  Transmission Date: 20230113
  Serious: No
  Sender: FDA-Public Use
  Company Number: US-CELLTRION INC.-2022US003926

PATIENT

DRUGS (4)
  1. TRUXIMA [Suspect]
     Active Substance: RITUXIMAB-ABBS
     Indication: Rheumatoid arthritis
     Dosage: 1000 MG, 0, 2 WEEKS AND EVERY 6 MONTHS
     Dates: start: 20210513
  2. TRUXIMA [Suspect]
     Active Substance: RITUXIMAB-ABBS
     Indication: Rheumatoid vasculitis
     Dosage: 1000 MG, 0, 2 WEEKS AND EVERY 6 MONTHS
     Dates: start: 20210527
  3. TRUXIMA [Suspect]
     Active Substance: RITUXIMAB-ABBS
     Dosage: 1000 MG, 0, 2 WEEKS AND EVERY 6 MONTHS
     Dates: start: 20211119
  4. TRUXIMA [Suspect]
     Active Substance: RITUXIMAB-ABBS
     Dosage: 1000 MG, 0, 2 WEEKS AND EVERY 6 MONTHS
     Dates: start: 20211129

REACTIONS (2)
  - Rheumatoid vasculitis [Unknown]
  - Off label use [Unknown]
